FAERS Safety Report 9650076 (Version 1)
Quarter: 2013Q4

REPORT INFORMATION
  Report Type: Spontaneous
  Country: US (occurrence: US)
  Receive Date: 20131028
  Receipt Date: 20131028
  Transmission Date: 20140711
  Serious: No
  Sender: FDA-Public Use
  Company Number: US-PURDUE-USA-2012-0096570

PATIENT
  Age: 63 Year
  Sex: Male
  Weight: 101 kg

DRUGS (2)
  1. OXYCONTIN (NDA 22-272) [Suspect]
     Indication: SCOLIOSIS
     Dosage: 640 MG, DAILY
     Route: 048
     Dates: start: 2002, end: 201210
  2. CARISOPRODOL [Suspect]
     Indication: SCOLIOSIS
     Dosage: 700 MG, TID
     Route: 048
     Dates: start: 20121030, end: 20121106

REACTIONS (7)
  - Drug withdrawal syndrome [Not Recovered/Not Resolved]
  - Headache [Not Recovered/Not Resolved]
  - Vision blurred [Not Recovered/Not Resolved]
  - Diarrhoea [Not Recovered/Not Resolved]
  - Abdominal pain upper [Not Recovered/Not Resolved]
  - Insomnia [Not Recovered/Not Resolved]
  - Abdominal discomfort [Unknown]
